FAERS Safety Report 25142777 (Version 1)
Quarter: 2025Q1

REPORT INFORMATION
  Report Type: Spontaneous
  Country: US (occurrence: US)
  Receive Date: 20250331
  Receipt Date: 20250331
  Transmission Date: 20250408
  Serious: Yes (Hospitalization, Other)
  Sender: BRISTOL-MYERS SQUIBB COMPANY
  Company Number: US-BRISTOL-MYERS SQUIBB COMPANY-2025-042564

PATIENT
  Age: 70 Year
  Sex: Female
  Weight: 65.32 kg

DRUGS (16)
  1. REVLIMID [Suspect]
     Active Substance: LENALIDOMIDE
     Indication: Plasma cell myeloma
     Dosage: ONCE DAILY FOR 21 DAYS
     Route: 048
  2. ASPIRIN [Concomitant]
     Active Substance: ASPIRIN
     Route: 048
  3. ASPIRIN;DIPYRIDAMOLE [Concomitant]
     Route: 048
  4. CALCIUM CITRATE;VITAMIN D NOS [Concomitant]
     Route: 048
  5. DARZALEX [Concomitant]
     Active Substance: DARATUMUMAB
     Route: 042
  6. DEXAMETHASONE [Concomitant]
     Active Substance: DEXAMETHASONE
     Route: 048
  7. FIBER LAX [Concomitant]
     Active Substance: CALCIUM POLYCARBOPHIL
     Route: 048
  8. FOLATE SODIUM [Concomitant]
     Active Substance: FOLATE SODIUM
     Route: 048
  9. JOINT HEALTH [Concomitant]
     Active Substance: AMINO ACIDS\BARLEY MALT
     Route: 048
  10. LEVOTHYROXINE SODIUM [Concomitant]
     Active Substance: LEVOTHYROXINE SODIUM
     Route: 048
  11. OMEPRAZOLE DELAYED RELEASE [OMEPRAZOLE] [Concomitant]
     Route: 048
  12. ROSUVASTATIN CALCIUM [Concomitant]
     Active Substance: ROSUVASTATIN CALCIUM
     Route: 048
  13. VELCADE [Concomitant]
     Active Substance: BORTEZOMIB
     Route: 048
  14. VITAMIN B COMPLEX [Concomitant]
     Active Substance: CYANOCOBALAMIN\DEXPANTHENOL\NIACINAMIDE\PYRIDOXINE HYDROCHLORIDE\RIBOFLAVIN 5^-PHOSPHATE SODIUM\THIA
     Route: 048
  15. VITAMIN D3 [Concomitant]
     Active Substance: CHOLECALCIFEROL
     Route: 048
  16. MAGNESIUM;POTASSIUM [Concomitant]
     Route: 048

REACTIONS (1)
  - Pneumothorax [Unknown]
